FAERS Safety Report 8909852 (Version 1)
Quarter: 2012Q4

REPORT INFORMATION
  Report Type: 
  Country: US (occurrence: US)
  Receive Date: 20121114
  Receipt Date: 20121114
  Transmission Date: 20130627
  Serious: Yes (Other)
  Sender: FDA-Public Use
  Company Number: US-PFIZER INC-2012268635

PATIENT
  Age: 47 Year
  Sex: Female
  Weight: 158.28 kg

DRUGS (5)
  1. LIPITOR [Suspect]
     Indication: HIGH CHOLESTEROL
     Dosage: 40 mg, 1x/day
     Route: 048
     Dates: start: 200611
  2. ADVAIR [Concomitant]
     Dosage: UNK
  3. LANTUS [Concomitant]
     Dosage: UNK
  4. LISINOPRIL [Concomitant]
     Dosage: UNK
  5. METFORMIN [Concomitant]
     Dosage: UNK

REACTIONS (3)
  - Hypoacusis [Unknown]
  - Sinus disorder [Unknown]
  - Glycosylated haemoglobin increased [Unknown]
